FAERS Safety Report 25286985 (Version 2)
Quarter: 2025Q2

REPORT INFORMATION
  Report Type: Spontaneous
  Country: ID (occurrence: ID)
  Receive Date: 20250509
  Receipt Date: 20250514
  Transmission Date: 20250717
  Serious: Yes (Other)
  Sender: ROCHE
  Company Number: ID-ROCHE-10000276968

PATIENT

DRUGS (2)
  1. BEVACIZUMAB [Suspect]
     Active Substance: BEVACIZUMAB
     Indication: Product used for unknown indication
     Route: 065
  2. RANIBIZUMAB [Suspect]
     Active Substance: RANIBIZUMAB
     Indication: Product used for unknown indication
     Route: 065

REACTIONS (7)
  - Intraocular pressure increased [Unknown]
  - Vitreous haemorrhage [Unknown]
  - Chorioretinitis [Unknown]
  - Endophthalmitis [Unknown]
  - Glaucoma [Unknown]
  - Retinal vein occlusion [Unknown]
  - Cerebrovascular accident [Unknown]
